FAERS Safety Report 8925801 (Version 3)
Quarter: 2013Q1

REPORT INFORMATION
  Report Type: Spontaneous
  Country: NL (occurrence: NL)
  Receive Date: 20121126
  Receipt Date: 20130118
  Transmission Date: 20140127
  Serious: Yes (Hospitalization, Other)
  Sender: FDA-Public Use
  Company Number: PHHY2012NL106902

PATIENT
  Sex: Male

DRUGS (13)
  1. ZOMETA [Suspect]
     Indication: PROSTATE CANCER METASTATIC
     Dosage: 4MG, ONCE PER 28 DAYS
     Route: 042
  2. ZOMETA [Suspect]
     Indication: METASTASES TO BONE
     Dosage: 4MG, ONCE PER 28 DAYS
     Route: 042
     Dates: start: 20110802
  3. ZOMETA [Suspect]
     Dosage: 4MG, ONCE PER 28 DAYS
     Route: 042
     Dates: start: 20121023
  4. ZOMETA [Suspect]
     Dosage: UNK UKN, UNK
     Route: 042
     Dates: start: 20121122
  5. SPIRONOLACTON [Concomitant]
  6. BUMETANIDE [Concomitant]
  7. PANTOPRAZOLE [Concomitant]
  8. LANOXIN [Concomitant]
  9. ACENOCOUMAROL [Concomitant]
  10. VERAPAMIL [Concomitant]
  11. GOSERELIN [Concomitant]
  12. SIMVASTATIN [Concomitant]
  13. BECLOMETHASONE COX [Concomitant]

REACTIONS (4)
  - Skin discolouration [Recovering/Resolving]
  - Angiopathy [Not Recovered/Not Resolved]
  - Extremity necrosis [Unknown]
  - Pain [Unknown]
